FAERS Safety Report 6895988-3 (Version None)
Quarter: 2010Q3

REPORT INFORMATION
  Report Type: 
  Country: None (occurrence: None)
  Receive Date: 20100728
  Receipt Date: 20100719
  Transmission Date: 20110219
  Serious: Yes (Hospitalization)
  Sender: FDA-Public Use
  Company Number: TPA2010A04182

PATIENT
  Age: 76 Year
  Sex: Male
  Weight: 87.5442 kg

DRUGS (9)
  1. ACTOS [Suspect]
     Indication: TYPE 2 DIABETES MELLITUS
     Dosage: 45 MG, 1 IN 1 D, PER ORAL
     Route: 048
     Dates: start: 20050719
  2. AMARYL [Concomitant]
  3. GLUCOPHAGE [Concomitant]
  4. ATACAND [Concomitant]
  5. CRESTOR [Concomitant]
  6. TCN (ALL OTHER THERAPEUTIC PRODUCTS) [Concomitant]
  7. METOPROLOL SUCCINATE [Concomitant]
  8. LOVASTATIN [Concomitant]
  9. LISINOPRIL [Concomitant]

REACTIONS (22)
  - ABDOMINAL PAIN UPPER [None]
  - ARTERIAL OCCLUSIVE DISEASE [None]
  - CHEST PAIN [None]
  - DYSPEPSIA [None]
  - DYSPNOEA [None]
  - EYE SWELLING [None]
  - GINGIVAL PAIN [None]
  - HEADACHE [None]
  - MYALGIA [None]
  - NASOPHARYNGITIS [None]
  - NAUSEA [None]
  - OROPHARYNGEAL PAIN [None]
  - PAIN IN JAW [None]
  - RESPIRATORY TRACT CONGESTION [None]
  - RESPIRATORY TRACT INFECTION [None]
  - SINUSITIS [None]
  - THROAT TIGHTNESS [None]
  - TOOTH DISORDER [None]
  - TOOTHACHE [None]
  - TREATMENT FAILURE [None]
  - VASCULAR STENOSIS [None]
  - WEIGHT INCREASED [None]
